FAERS Safety Report 22013148 (Version 3)
Quarter: 2023Q1

REPORT INFORMATION
  Report Type: Spontaneous
  Country: CA (occurrence: CA)
  Receive Date: 20230220
  Receipt Date: 20230330
  Transmission Date: 20230418
  Serious: Yes (Hospitalization, Other)
  Sender: FDA-Public Use
  Company Number: CA-002147023-NVSC2023CA033770

PATIENT
  Age: 47 Year
  Sex: Female

DRUGS (237)
  1. LORAZEPAM [Interacting]
     Active Substance: LORAZEPAM
     Indication: Withdrawal syndrome
     Dosage: UNK
     Route: 065
  2. LORAZEPAM [Interacting]
     Active Substance: LORAZEPAM
     Indication: Anxiety
     Dosage: UNK
     Route: 048
  3. LORAZEPAM [Interacting]
     Active Substance: LORAZEPAM
     Indication: Affective disorder
     Dosage: UNK
     Route: 030
  4. LORAZEPAM [Interacting]
     Active Substance: LORAZEPAM
     Dosage: UNK
     Route: 065
  5. LORAZEPAM [Interacting]
     Active Substance: LORAZEPAM
     Dosage: 4 MG
     Route: 065
  6. LORAZEPAM [Interacting]
     Active Substance: LORAZEPAM
     Dosage: 5 MG, QD
     Route: 065
  7. LORAZEPAM [Interacting]
     Active Substance: LORAZEPAM
     Dosage: 6 MG
     Route: 065
  8. LORAZEPAM [Interacting]
     Active Substance: LORAZEPAM
     Dosage: 7 MG
     Route: 065
  9. LORAZEPAM [Interacting]
     Active Substance: LORAZEPAM
     Dosage: 3 MG
     Route: 065
  10. LORAZEPAM [Interacting]
     Active Substance: LORAZEPAM
     Dosage: 1 MG
     Route: 065
  11. LORAZEPAM [Interacting]
     Active Substance: LORAZEPAM
     Dosage: 2 MG (1 EVERY 2 DAYS)
     Route: 048
  12. LORAZEPAM [Interacting]
     Active Substance: LORAZEPAM
     Dosage: 5 MG
     Route: 065
  13. LORAZEPAM [Interacting]
     Active Substance: LORAZEPAM
     Dosage: 2 MG
     Route: 065
  14. LORAZEPAM [Interacting]
     Active Substance: LORAZEPAM
     Dosage: 1 MG, QD
     Route: 030
  15. LORAZEPAM [Interacting]
     Active Substance: LORAZEPAM
     Dosage: 1 MG
     Route: 048
  16. LORAZEPAM [Interacting]
     Active Substance: LORAZEPAM
     Dosage: 7 MG
     Route: 065
  17. LORAZEPAM [Interacting]
     Active Substance: LORAZEPAM
     Dosage: 2 MG (4 EVERY 1 DAYS)
     Route: 048
  18. LORAZEPAM [Interacting]
     Active Substance: LORAZEPAM
     Dosage: 1 MG
     Route: 030
  19. LORAZEPAM [Interacting]
     Active Substance: LORAZEPAM
     Dosage: UNK UNK, PRN
     Route: 048
  20. QUETIAPINE [Interacting]
     Active Substance: QUETIAPINE
     Indication: Major depression
     Dosage: UNK
     Route: 065
  21. QUETIAPINE [Interacting]
     Active Substance: QUETIAPINE
     Dosage: UNK
     Route: 048
  22. QUETIAPINE [Interacting]
     Active Substance: QUETIAPINE
     Dosage: 100 MG, QD
     Route: 048
  23. QUETIAPINE [Interacting]
     Active Substance: QUETIAPINE
     Dosage: 50 MG (1 EVERY .2 DAYS)
     Route: 065
  24. QUETIAPINE [Interacting]
     Active Substance: QUETIAPINE
     Dosage: 50 MG, QD
     Route: 048
  25. QUETIAPINE [Interacting]
     Active Substance: QUETIAPINE
     Dosage: 100 MG
     Route: 048
  26. QUETIAPINE [Interacting]
     Active Substance: QUETIAPINE
     Dosage: 50 MG (4 EVERY .1 DAYS)
     Route: 065
  27. QUETIAPINE [Interacting]
     Active Substance: QUETIAPINE
     Dosage: UNK UNK, QD
     Route: 048
  28. QUETIAPINE [Interacting]
     Active Substance: QUETIAPINE
     Dosage: UNK UNK, QD
     Route: 048
  29. QUETIAPINE [Interacting]
     Active Substance: QUETIAPINE
     Dosage: UNK
     Route: 065
  30. QUETIAPINE [Interacting]
     Active Substance: QUETIAPINE
     Dosage: 100 MG
     Route: 048
  31. QUETIAPINE [Interacting]
     Active Substance: QUETIAPINE
     Dosage: 100 MG, QD
     Route: 048
  32. QUETIAPINE [Interacting]
     Active Substance: QUETIAPINE
     Dosage: UNK UNK, PRN
     Route: 048
  33. QUETIAPINE [Interacting]
     Active Substance: QUETIAPINE
     Dosage: UNK (EVERY 1 DAYS)
     Route: 048
  34. RISPERIDONE [Interacting]
     Active Substance: RISPERIDONE
     Indication: Affective disorder
     Dosage: 1 MG, QD
     Route: 048
  35. RISPERIDONE [Interacting]
     Active Substance: RISPERIDONE
     Dosage: 0.25 MG, QD
     Route: 048
  36. RISPERIDONE [Interacting]
     Active Substance: RISPERIDONE
     Dosage: UNK
     Route: 065
  37. FUROSEMIDE [Interacting]
     Active Substance: FUROSEMIDE
     Indication: Product used for unknown indication
     Dosage: 40 MG (AS REQUIRED)
     Route: 048
  38. QUETIAPINE FUMARATE [Interacting]
     Active Substance: QUETIAPINE FUMARATE
     Indication: Major depression
     Dosage: UNK, QID
     Route: 065
  39. QUETIAPINE FUMARATE [Interacting]
     Active Substance: QUETIAPINE FUMARATE
     Dosage: 100 MG, QD
     Route: 048
  40. QUETIAPINE FUMARATE [Interacting]
     Active Substance: QUETIAPINE FUMARATE
     Dosage: UNK
     Route: 065
  41. QUETIAPINE FUMARATE [Interacting]
     Active Substance: QUETIAPINE FUMARATE
     Dosage: UNK
     Route: 048
  42. QUETIAPINE [Interacting]
     Active Substance: QUETIAPINE
     Indication: Major depression
     Dosage: 100 MG, QD
     Route: 048
  43. QUETIAPINE [Interacting]
     Active Substance: QUETIAPINE
     Dosage: UNK
     Route: 065
  44. QUETIAPINE FUMARATE [Interacting]
     Active Substance: QUETIAPINE FUMARATE
     Indication: Major depression
     Dosage: UNK
     Route: 065
  45. QUETIAPINE FUMARATE [Interacting]
     Active Substance: QUETIAPINE FUMARATE
     Dosage: UNK
     Route: 065
  46. QUETIAPINE FUMARATE [Interacting]
     Active Substance: QUETIAPINE FUMARATE
     Dosage: UNK
     Route: 048
  47. QUETIAPINE FUMARATE [Interacting]
     Active Substance: QUETIAPINE FUMARATE
     Dosage: 100 MG, QD
     Route: 048
  48. CYCLOBENZAPRINE [Interacting]
     Active Substance: CYCLOBENZAPRINE
     Indication: Pain
     Dosage: 10 MG
     Route: 048
  49. CYCLOBENZAPRINE [Interacting]
     Active Substance: CYCLOBENZAPRINE
     Indication: Scoliosis
     Dosage: 3 DOSAGE FORM, QD
     Route: 048
  50. CYCLOBENZAPRINE [Interacting]
     Active Substance: CYCLOBENZAPRINE
     Dosage: 1 DOSAGE FORM, BID
     Route: 048
  51. CYCLOBENZAPRINE [Interacting]
     Active Substance: CYCLOBENZAPRINE
     Dosage: 10 MG, BID
     Route: 048
  52. CYCLOBENZAPRINE [Interacting]
     Active Substance: CYCLOBENZAPRINE
     Dosage: 10 MG, QD
     Route: 048
  53. CYCLOBENZAPRINE [Interacting]
     Active Substance: CYCLOBENZAPRINE
     Dosage: 10 MG (1 EVERY .5 DAYS)
     Route: 048
  54. CYCLOBENZAPRINE [Interacting]
     Active Substance: CYCLOBENZAPRINE
     Dosage: 10 MG (1 EVERY .3 DAYS)
     Route: 048
  55. CYCLOBENZAPRINE [Interacting]
     Active Substance: CYCLOBENZAPRINE
     Dosage: 10 MG, TID
     Route: 048
  56. CYCLOBENZAPRINE [Interacting]
     Active Substance: CYCLOBENZAPRINE
     Dosage: 10 MILLIEQUIVALANTS (2 EVERY .1 DAYS)
     Route: 048
  57. CYCLOBENZAPRINE [Interacting]
     Active Substance: CYCLOBENZAPRINE
     Dosage: 10 MG
     Route: 048
  58. CYCLOBENZAPRINE [Interacting]
     Active Substance: CYCLOBENZAPRINE
     Dosage: 10 MG (2 EVERY .1 DAYS)
     Route: 048
  59. CYCLOBENZAPRINE [Interacting]
     Active Substance: CYCLOBENZAPRINE
     Dosage: 10 MG
     Route: 048
  60. CYCLOBENZAPRINE [Interacting]
     Active Substance: CYCLOBENZAPRINE
     Dosage: 50 MBQ, BID
     Route: 048
  61. CYCLOBENZAPRINE [Interacting]
     Active Substance: CYCLOBENZAPRINE
     Dosage: 10 MG, Q12H
     Route: 048
  62. CYCLOBENZAPRINE [Interacting]
     Active Substance: CYCLOBENZAPRINE
     Dosage: 10 MG, QMO
     Route: 048
  63. CYCLOBENZAPRINE [Interacting]
     Active Substance: CYCLOBENZAPRINE
     Dosage: 10 MG, Q12MO
     Route: 048
  64. DOXEPIN HYDROCHLORIDE [Interacting]
     Active Substance: DOXEPIN HYDROCHLORIDE
     Indication: Major depression
     Dosage: 50 MG, QD
     Route: 048
  65. DOXEPIN HYDROCHLORIDE [Interacting]
     Active Substance: DOXEPIN HYDROCHLORIDE
     Dosage: 100 MG, QD
     Route: 048
  66. DOXEPIN HYDROCHLORIDE [Interacting]
     Active Substance: DOXEPIN HYDROCHLORIDE
     Dosage: 150 MG, QD
     Route: 048
  67. DOXEPIN HYDROCHLORIDE [Interacting]
     Active Substance: DOXEPIN HYDROCHLORIDE
     Dosage: 150 MG
     Route: 048
  68. DOXEPIN HYDROCHLORIDE [Interacting]
     Active Substance: DOXEPIN HYDROCHLORIDE
     Dosage: 50 MG
     Route: 048
  69. DOXEPIN HYDROCHLORIDE [Interacting]
     Active Substance: DOXEPIN HYDROCHLORIDE
     Dosage: 150 MG, QD
     Route: 048
  70. DOXEPIN HYDROCHLORIDE [Interacting]
     Active Substance: DOXEPIN HYDROCHLORIDE
     Dosage: 100 MG, QD
     Route: 048
  71. DOXEPIN HYDROCHLORIDE [Interacting]
     Active Substance: DOXEPIN HYDROCHLORIDE
     Dosage: 50 MG, QD
     Route: 048
  72. DOXEPIN HYDROCHLORIDE [Interacting]
     Active Substance: DOXEPIN HYDROCHLORIDE
     Dosage: 100 MG
     Route: 048
  73. DOXEPIN HYDROCHLORIDE [Interacting]
     Active Substance: DOXEPIN HYDROCHLORIDE
     Dosage: 100 MG, QD
     Route: 048
  74. DOXEPIN HYDROCHLORIDE [Interacting]
     Active Substance: DOXEPIN HYDROCHLORIDE
     Dosage: 150 MG, QD
     Route: 048
  75. DOXEPIN HYDROCHLORIDE [Interacting]
     Active Substance: DOXEPIN HYDROCHLORIDE
     Dosage: 150 MG
     Route: 048
  76. FLUOXETINE [Interacting]
     Active Substance: FLUOXETINE HYDROCHLORIDE
     Indication: Major depression
     Dosage: 20 MG, QD
     Route: 048
  77. FLUOXETINE [Interacting]
     Active Substance: FLUOXETINE HYDROCHLORIDE
     Dosage: 40 MG, QD
     Route: 048
  78. FLUOXETINE [Interacting]
     Active Substance: FLUOXETINE HYDROCHLORIDE
     Dosage: 60 MG, QD
     Route: 048
  79. FLUOXETINE [Interacting]
     Active Substance: FLUOXETINE HYDROCHLORIDE
     Dosage: 80 MG, QD
     Route: 048
  80. FLUOXETINE [Interacting]
     Active Substance: FLUOXETINE HYDROCHLORIDE
     Dosage: 20 MG, QD
     Route: 048
  81. FLUOXETINE [Interacting]
     Active Substance: FLUOXETINE HYDROCHLORIDE
     Dosage: 80 MG
     Route: 048
  82. FLUOXETINE [Interacting]
     Active Substance: FLUOXETINE HYDROCHLORIDE
     Dosage: UNK
     Route: 048
  83. FLUOXETINE [Interacting]
     Active Substance: FLUOXETINE HYDROCHLORIDE
     Dosage: UNK
     Route: 048
  84. FLUOXETINE [Interacting]
     Active Substance: FLUOXETINE HYDROCHLORIDE
     Dosage: UNK
     Route: 048
  85. FLUOXETINE [Interacting]
     Active Substance: FLUOXETINE HYDROCHLORIDE
     Dosage: UNK
     Route: 048
  86. FLUOXETINE [Interacting]
     Active Substance: FLUOXETINE HYDROCHLORIDE
     Dosage: UNK
     Route: 048
  87. FLUOXETINE [Interacting]
     Active Substance: FLUOXETINE HYDROCHLORIDE
     Dosage: 20 MG
     Route: 048
  88. FLUOXETINE [Interacting]
     Active Substance: FLUOXETINE HYDROCHLORIDE
     Dosage: 80 MG
     Route: 048
  89. FLUOXETINE [Interacting]
     Active Substance: FLUOXETINE HYDROCHLORIDE
     Dosage: 60 MG
     Route: 048
  90. FLUOXETINE [Interacting]
     Active Substance: FLUOXETINE HYDROCHLORIDE
     Dosage: 40 MG
     Route: 048
  91. FLUOXETINE [Interacting]
     Active Substance: FLUOXETINE HYDROCHLORIDE
     Dosage: 60 MG, QD
     Route: 048
  92. FLUOXETINE [Interacting]
     Active Substance: FLUOXETINE HYDROCHLORIDE
     Dosage: 40 MG, QD
     Route: 048
  93. FLUOXETINE [Interacting]
     Active Substance: FLUOXETINE HYDROCHLORIDE
     Dosage: 40 MG, QD
     Route: 048
  94. FLUOXETINE [Interacting]
     Active Substance: FLUOXETINE HYDROCHLORIDE
     Dosage: 40 MG, QD
     Route: 048
  95. FLUOXETINE [Interacting]
     Active Substance: FLUOXETINE HYDROCHLORIDE
     Dosage: 20 MG, QD
     Route: 048
  96. FLUOXETINE [Interacting]
     Active Substance: FLUOXETINE HYDROCHLORIDE
     Dosage: 40 MG, QD
     Route: 048
  97. FLUOXETINE [Interacting]
     Active Substance: FLUOXETINE HYDROCHLORIDE
     Dosage: 80 MG, QD
     Route: 048
  98. FLUOXETINE [Interacting]
     Active Substance: FLUOXETINE HYDROCHLORIDE
     Dosage: 60 MG, QD
     Route: 048
  99. FLUOXETINE [Interacting]
     Active Substance: FLUOXETINE HYDROCHLORIDE
     Dosage: 40 MG, QD
     Route: 048
  100. GABAPENTIN [Interacting]
     Active Substance: GABAPENTIN
     Indication: Scoliosis
     Dosage: UNK
     Route: 065
  101. GABAPENTIN [Interacting]
     Active Substance: GABAPENTIN
     Indication: Pain
     Dosage: 600 MG
     Route: 048
  102. GABAPENTIN [Interacting]
     Active Substance: GABAPENTIN
     Dosage: UNK
     Route: 048
  103. GABAPENTIN [Interacting]
     Active Substance: GABAPENTIN
     Dosage: 600 MG, TID
     Route: 048
  104. GABAPENTIN [Interacting]
     Active Substance: GABAPENTIN
     Dosage: 400 MG, TID
     Route: 048
  105. GABAPENTIN [Interacting]
     Active Substance: GABAPENTIN
     Dosage: 600 MG (1 EVERY .3 DAYS)
     Route: 048
  106. GABAPENTIN [Interacting]
     Active Substance: GABAPENTIN
     Dosage: 400 MG (1 EVERY .2 DAYS)
     Route: 065
  107. GABAPENTIN [Interacting]
     Active Substance: GABAPENTIN
     Dosage: 400 MG (4 EVERY, 1 DAYS)
     Route: 065
  108. GABAPENTIN [Interacting]
     Active Substance: GABAPENTIN
     Dosage: 600 MG (4 EVERY .1 DAYS)
     Route: 048
  109. GABAPENTIN [Interacting]
     Active Substance: GABAPENTIN
     Dosage: 600 MG
     Route: 048
  110. GABAPENTIN [Interacting]
     Active Substance: GABAPENTIN
     Dosage: 600 MG (3 EVERY .1 DAYS)
     Route: 048
  111. GABAPENTIN [Interacting]
     Active Substance: GABAPENTIN
     Dosage: 600 MG (4 EVERY .1 DAYS)
     Route: 048
  112. GABAPENTIN [Interacting]
     Active Substance: GABAPENTIN
     Dosage: UNK
     Route: 065
  113. GABAPENTIN [Interacting]
     Active Substance: GABAPENTIN
     Dosage: 600 MG (3 EVERY .1 DAYS)
     Route: 048
  114. GABAPENTIN [Interacting]
     Active Substance: GABAPENTIN
     Dosage: 600 MG, Q8H
     Route: 048
  115. METHADONE [Interacting]
     Active Substance: METHADONE HYDROCHLORIDE
     Indication: Drug use disorder
     Dosage: 75 MG, QD
     Route: 048
  116. METHADONE [Interacting]
     Active Substance: METHADONE HYDROCHLORIDE
     Dosage: 40 MG
     Route: 048
  117. METHADONE [Interacting]
     Active Substance: METHADONE HYDROCHLORIDE
     Dosage: 60 MG, QD
     Route: 048
  118. METHADONE [Interacting]
     Active Substance: METHADONE HYDROCHLORIDE
     Dosage: 50 MG
     Route: 048
  119. METHADONE [Interacting]
     Active Substance: METHADONE HYDROCHLORIDE
     Dosage: 75 MG, QD
     Route: 048
  120. METHADONE [Interacting]
     Active Substance: METHADONE HYDROCHLORIDE
     Dosage: UNK
     Route: 065
  121. METHADONE [Interacting]
     Active Substance: METHADONE HYDROCHLORIDE
     Dosage: 75 MG
     Route: 048
  122. METHADONE [Interacting]
     Active Substance: METHADONE HYDROCHLORIDE
     Dosage: 50 MG, QD
     Route: 065
  123. METHADONE [Interacting]
     Active Substance: METHADONE HYDROCHLORIDE
     Dosage: UNK
     Route: 065
  124. METHADONE [Interacting]
     Active Substance: METHADONE HYDROCHLORIDE
     Dosage: 60 MG, QD
     Route: 065
  125. METHADONE [Interacting]
     Active Substance: METHADONE HYDROCHLORIDE
     Dosage: 40 MG
     Route: 065
  126. METHADONE [Interacting]
     Active Substance: METHADONE HYDROCHLORIDE
     Dosage: 50 MG
     Route: 065
  127. METHADONE [Interacting]
     Active Substance: METHADONE HYDROCHLORIDE
     Dosage: 75 MG, QD
     Route: 065
  128. METHADONE [Interacting]
     Active Substance: METHADONE HYDROCHLORIDE
     Dosage: 60 MG
     Route: 065
  129. DIVALPROEX SODIUM [Interacting]
     Active Substance: DIVALPROEX SODIUM
     Indication: Affective disorder
     Dosage: 750 MG
     Route: 048
  130. DIVALPROEX SODIUM [Interacting]
     Active Substance: DIVALPROEX SODIUM
     Dosage: 500 MG
     Route: 048
  131. DIVALPROEX SODIUM [Interacting]
     Active Substance: DIVALPROEX SODIUM
     Dosage: 250 MG
     Route: 048
  132. DIVALPROEX SODIUM [Interacting]
     Active Substance: DIVALPROEX SODIUM
     Dosage: UNK, QD
     Route: 048
  133. DIVALPROEX SODIUM [Interacting]
     Active Substance: DIVALPROEX SODIUM
     Dosage: UNK
     Route: 048
  134. DIVALPROEX SODIUM [Interacting]
     Active Substance: DIVALPROEX SODIUM
     Dosage: 750 MG
     Route: 048
  135. DIVALPROEX SODIUM [Interacting]
     Active Substance: DIVALPROEX SODIUM
     Dosage: 250 MG
     Route: 048
  136. DIVALPROEX SODIUM [Interacting]
     Active Substance: DIVALPROEX SODIUM
     Dosage: 250 MG
     Route: 048
  137. DIVALPROEX SODIUM [Interacting]
     Active Substance: DIVALPROEX SODIUM
     Dosage: UNK
     Route: 065
  138. DIVALPROEX SODIUM [Interacting]
     Active Substance: DIVALPROEX SODIUM
     Dosage: 500 MG, QD
     Route: 048
  139. DIVALPROEX SODIUM [Interacting]
     Active Substance: DIVALPROEX SODIUM
     Dosage: 500 MG (EVERY 1 DAYS)
     Route: 048
  140. DIVALPROEX SODIUM [Interacting]
     Active Substance: DIVALPROEX SODIUM
     Dosage: UNK, QD
     Route: 048
  141. DIVALPROEX SODIUM [Interacting]
     Active Substance: DIVALPROEX SODIUM
     Dosage: 250 MG (EVERY 1 DAYS)
     Route: 048
  142. DIVALPROEX SODIUM [Interacting]
     Active Substance: DIVALPROEX SODIUM
     Dosage: 250 MG, QD
     Route: 048
  143. DIVALPROEX SODIUM [Interacting]
     Active Substance: DIVALPROEX SODIUM
     Indication: Affective disorder
     Dosage: 250 MG, QD
     Route: 048
  144. DIVALPROEX SODIUM [Interacting]
     Active Substance: DIVALPROEX SODIUM
     Indication: Mania
     Dosage: 250 MG, QD
     Route: 048
  145. DIVALPROEX SODIUM [Interacting]
     Active Substance: DIVALPROEX SODIUM
     Dosage: 750 MG, QD
     Route: 048
  146. DIVALPROEX SODIUM [Interacting]
     Active Substance: DIVALPROEX SODIUM
     Dosage: 500 MG, QD
     Route: 048
  147. DIVALPROEX SODIUM [Interacting]
     Active Substance: DIVALPROEX SODIUM
     Dosage: 750 MG
     Route: 048
  148. ATENOLOL [Interacting]
     Active Substance: ATENOLOL
     Indication: Product used for unknown indication
     Dosage: 50 MG
     Route: 048
  149. DOXEPIN [Interacting]
     Active Substance: DOXEPIN
     Indication: Major depression
     Dosage: 50 MG, QD
     Route: 048
  150. DOXEPIN [Interacting]
     Active Substance: DOXEPIN
     Dosage: 150 MG
     Route: 065
  151. DOXEPIN [Interacting]
     Active Substance: DOXEPIN
     Dosage: 50 MG, QD
     Route: 048
  152. DOXEPIN [Interacting]
     Active Substance: DOXEPIN
     Dosage: 100 MG, QD
     Route: 048
  153. DOXEPIN [Interacting]
     Active Substance: DOXEPIN
     Dosage: 100 MG
     Route: 048
  154. DOXEPIN [Interacting]
     Active Substance: DOXEPIN
     Dosage: 150 MG, QD
     Route: 048
  155. DOXEPIN [Interacting]
     Active Substance: DOXEPIN
     Dosage: 150 MG, QD
     Route: 048
  156. DOXEPIN [Interacting]
     Active Substance: DOXEPIN
     Indication: Major depression
     Dosage: UNK
     Route: 048
  157. DOXEPIN [Interacting]
     Active Substance: DOXEPIN
     Dosage: 150 MG, QD
     Route: 048
  158. DOXEPIN [Interacting]
     Active Substance: DOXEPIN
     Dosage: 100 MG, QD
     Route: 048
  159. DOXEPIN [Interacting]
     Active Substance: DOXEPIN
     Dosage: 50 MG, QD
     Route: 048
  160. DOXEPIN [Interacting]
     Active Substance: DOXEPIN
     Dosage: 150 MG, QD
     Route: 048
  161. DOXEPIN [Interacting]
     Active Substance: DOXEPIN
     Dosage: 150 MG
     Route: 048
  162. RISPERDAL [Interacting]
     Active Substance: RISPERIDONE
     Indication: Affective disorder
     Dosage: 0.25 MG, QD
     Route: 048
  163. RISPERDAL [Interacting]
     Active Substance: RISPERIDONE
     Dosage: 1 MG, QD
     Route: 048
  164. DOXEPIN [Interacting]
     Active Substance: DOXEPIN
     Indication: Major depression
     Dosage: 100 MG
     Route: 048
  165. DOXEPIN [Interacting]
     Active Substance: DOXEPIN
     Dosage: 150 MG, QD
     Route: 048
  166. DOXEPIN [Interacting]
     Active Substance: DOXEPIN
     Dosage: 50 MG
     Route: 048
  167. DIVALPROEX SODIUM [Interacting]
     Active Substance: DIVALPROEX SODIUM
     Indication: Mania
     Dosage: 250 MG
     Route: 048
  168. DIVALPROEX SODIUM [Interacting]
     Active Substance: DIVALPROEX SODIUM
     Dosage: 500 MG
     Route: 048
  169. DIVALPROEX SODIUM [Interacting]
     Active Substance: DIVALPROEX SODIUM
     Dosage: 750 MG
     Route: 048
  170. FLUOXETINE [Interacting]
     Active Substance: FLUOXETINE HYDROCHLORIDE
     Indication: Major depression
     Dosage: 80 MG
     Route: 048
  171. FLUOXETINE [Interacting]
     Active Substance: FLUOXETINE HYDROCHLORIDE
     Dosage: 40 MG
     Route: 048
  172. FLUOXETINE [Interacting]
     Active Substance: FLUOXETINE HYDROCHLORIDE
     Dosage: 80 MG
     Route: 048
  173. FLUOXETINE [Interacting]
     Active Substance: FLUOXETINE HYDROCHLORIDE
     Dosage: 60 MG, QD
     Route: 048
  174. FLUOXETINE [Interacting]
     Active Substance: FLUOXETINE HYDROCHLORIDE
     Dosage: 20 MG, QD
     Route: 048
  175. FLUOXETINE [Interacting]
     Active Substance: FLUOXETINE HYDROCHLORIDE
     Dosage: 60 MG, QD
     Route: 048
  176. FLUOXETINE [Interacting]
     Active Substance: FLUOXETINE HYDROCHLORIDE
     Dosage: 60 MG
     Route: 048
  177. FLUOXETINE [Interacting]
     Active Substance: FLUOXETINE HYDROCHLORIDE
     Dosage: 20 MG
     Route: 048
  178. FLUOXETINE [Interacting]
     Active Substance: FLUOXETINE HYDROCHLORIDE
     Dosage: 40 MG, QD
     Route: 048
  179. FLUOXETINE [Interacting]
     Active Substance: FLUOXETINE HYDROCHLORIDE
     Dosage: 60 MG
     Route: 048
  180. FLUOXETINE [Interacting]
     Active Substance: FLUOXETINE HYDROCHLORIDE
     Dosage: 40 MG, QD
     Route: 048
  181. FLUOXETINE [Interacting]
     Active Substance: FLUOXETINE HYDROCHLORIDE
     Dosage: 80 MG, QD
     Route: 048
  182. FLUOXETINE HYDROCHLORIDE [Interacting]
     Active Substance: FLUOXETINE HYDROCHLORIDE
     Indication: Major depression
     Dosage: 80 MG, QD
     Route: 048
  183. FLUOXETINE HYDROCHLORIDE [Interacting]
     Active Substance: FLUOXETINE HYDROCHLORIDE
     Dosage: 60 MG, QD
     Route: 048
  184. FLUOXETINE HYDROCHLORIDE [Interacting]
     Active Substance: FLUOXETINE HYDROCHLORIDE
     Dosage: 40 MG, QD
     Route: 048
  185. FLUOXETINE HYDROCHLORIDE [Interacting]
     Active Substance: FLUOXETINE HYDROCHLORIDE
     Dosage: 20 MG, QD
     Route: 048
  186. FLUOXETINE HYDROCHLORIDE [Interacting]
     Active Substance: FLUOXETINE HYDROCHLORIDE
     Dosage: 20 MG, QD
     Route: 048
  187. DOXEPIN [Concomitant]
     Active Substance: DOXEPIN
     Indication: Product used for unknown indication
     Dosage: UNK
     Route: 065
  188. GABAPENTIN [Concomitant]
     Active Substance: GABAPENTIN
     Indication: Product used for unknown indication
     Dosage: UNK
     Route: 065
  189. ATENOLOL [Concomitant]
     Active Substance: ATENOLOL
     Indication: Hypertension
     Dosage: 50 MG, QD
     Route: 048
  190. ATENOLOL [Concomitant]
     Active Substance: ATENOLOL
     Dosage: UNK
     Route: 065
  191. ATENOLOL [Concomitant]
     Active Substance: ATENOLOL
     Dosage: UNK
     Route: 065
  192. ATENOLOL [Concomitant]
     Active Substance: ATENOLOL
     Dosage: UNK UNK, QD
     Route: 048
  193. ATENOLOL [Concomitant]
     Active Substance: ATENOLOL
     Dosage: 50 MG, QD
     Route: 048
  194. ATENOLOL [Concomitant]
     Active Substance: ATENOLOL
     Dosage: UNK
     Route: 065
  195. ATENOLOL [Concomitant]
     Active Substance: ATENOLOL
     Dosage: UNK
     Route: 048
  196. ATENOLOL [Concomitant]
     Active Substance: ATENOLOL
     Dosage: 50 MG (EVERY 1 DAYS)
     Route: 048
  197. ATENOLOL [Concomitant]
     Active Substance: ATENOLOL
     Dosage: UNK
     Route: 065
  198. ATENOLOL [Concomitant]
     Active Substance: ATENOLOL
     Dosage: 50 MG, QD
     Route: 048
  199. FUROSEMIDE [Concomitant]
     Active Substance: FUROSEMIDE
     Indication: Oedema peripheral
     Dosage: 40 MG
     Route: 048
  200. FUROSEMIDE [Concomitant]
     Active Substance: FUROSEMIDE
     Dosage: 40 MG, QD
     Route: 048
  201. FUROSEMIDE [Concomitant]
     Active Substance: FUROSEMIDE
     Dosage: UNK
     Route: 065
  202. FUROSEMIDE [Concomitant]
     Active Substance: FUROSEMIDE
     Dosage: 40 MG
     Route: 065
  203. FUROSEMIDE [Concomitant]
     Active Substance: FUROSEMIDE
     Dosage: 40 MG, PRN
     Route: 065
  204. CLONIDINE [Concomitant]
     Active Substance: CLONIDINE
     Indication: Product used for unknown indication
     Dosage: UNK
     Route: 065
  205. ESTRADIOL [Concomitant]
     Active Substance: ESTRADIOL
     Indication: Endometriosis
     Dosage: 0.5 MG, QD
     Route: 048
  206. ESTRADIOL [Concomitant]
     Active Substance: ESTRADIOL
     Dosage: UNK
     Route: 065
  207. NAPROXEN [Concomitant]
     Active Substance: NAPROXEN
     Indication: Pain
     Dosage: 500 MG
     Route: 048
  208. NAPROXEN [Concomitant]
     Active Substance: NAPROXEN
     Dosage: UNK
     Route: 065
  209. NAPROXEN [Concomitant]
     Active Substance: NAPROXEN
     Dosage: 500 MG
     Route: 048
  210. NAPROXEN [Concomitant]
     Active Substance: NAPROXEN
     Dosage: 5 UG, QD
     Route: 065
  211. NAPROXEN [Concomitant]
     Active Substance: NAPROXEN
     Dosage: 500 MG (1 EVERY .5 DAYS)
     Route: 048
  212. NAPROXEN [Concomitant]
     Active Substance: NAPROXEN
     Dosage: 500 MG
     Route: 048
  213. NAPROXEN [Concomitant]
     Active Substance: NAPROXEN
     Dosage: 500 MG
     Route: 048
  214. NAPROXEN [Concomitant]
     Active Substance: NAPROXEN
     Dosage: 500 MG
     Route: 048
  215. NAPROXEN [Concomitant]
     Active Substance: NAPROXEN
     Dosage: 500 MG, BID
     Route: 048
  216. NAPROXEN [Concomitant]
     Active Substance: NAPROXEN
     Dosage: 500 MG, PRN
     Route: 048
  217. ALBUTEROL [Concomitant]
     Active Substance: ALBUTEROL
     Indication: Chronic obstructive pulmonary disease
     Dosage: 200 UG
  218. ALBUTEROL [Concomitant]
     Active Substance: ALBUTEROL
     Dosage: UNK
     Route: 065
  219. ALBUTEROL [Concomitant]
     Active Substance: ALBUTEROL
     Dosage: 200 UG (1 EVERY .5 DAYS)
  220. ALBUTEROL [Concomitant]
     Active Substance: ALBUTEROL
     Dosage: 200 UG
     Route: 065
  221. ALBUTEROL [Concomitant]
     Active Substance: ALBUTEROL
     Dosage: 200 UG
     Route: 065
  222. ALBUTEROL [Concomitant]
     Active Substance: ALBUTEROL
     Dosage: 200 UG (2 EVERY .1 DAYS)
  223. ALBUTEROL [Concomitant]
     Active Substance: ALBUTEROL
     Dosage: 200 UG
     Route: 065
  224. ALBUTEROL [Concomitant]
     Active Substance: ALBUTEROL
     Dosage: 200 UG, PRN
     Route: 065
  225. TIOTROPIUM [Concomitant]
     Active Substance: TIOTROPIUM
     Indication: Chronic obstructive pulmonary disease
     Dosage: 5 UG, QD
  226. TIOTROPIUM [Concomitant]
     Active Substance: TIOTROPIUM
     Dosage: UNK
     Route: 065
  227. TIOTROPIUM [Concomitant]
     Active Substance: TIOTROPIUM
     Dosage: 5 UG, QD
     Route: 065
  228. TIOTROPIUM [Concomitant]
     Active Substance: TIOTROPIUM
     Dosage: 5 UG
     Route: 065
  229. NALOXONE [Concomitant]
     Active Substance: NALOXONE
     Indication: Product used for unknown indication
     Dosage: UNK
     Route: 065
  230. SPIRIVA [Concomitant]
     Active Substance: TIOTROPIUM BROMIDE MONOHYDRATE
     Indication: Chronic obstructive pulmonary disease
     Dosage: 5 UG
  231. SPIRIVA [Concomitant]
     Active Substance: TIOTROPIUM BROMIDE MONOHYDRATE
     Dosage: UNK
     Route: 065
  232. ESTRADIOL BENZOATE [Concomitant]
     Active Substance: ESTRADIOL BENZOATE
     Indication: Endometriosis
     Dosage: 0.5 MG, QD
     Route: 048
  233. CYCLOBENZAPRINE [Concomitant]
     Active Substance: CYCLOBENZAPRINE
     Indication: Product used for unknown indication
     Dosage: UNK
     Route: 065
  234. DIVALPROEX SODIUM [Concomitant]
     Active Substance: DIVALPROEX SODIUM
     Indication: Product used for unknown indication
     Dosage: UNK
     Route: 065
  235. LORAZEPAM [Concomitant]
     Active Substance: LORAZEPAM
     Indication: Product used for unknown indication
     Dosage: UNK
     Route: 065
  236. METHADONE [Concomitant]
     Active Substance: METHADONE HYDROCHLORIDE
     Indication: Product used for unknown indication
     Dosage: UNK
     Route: 065
  237. TIOTROPIUM BROMIDE MONOHYDRATE [Concomitant]
     Active Substance: TIOTROPIUM BROMIDE MONOHYDRATE
     Indication: Product used for unknown indication
     Dosage: UNK
     Route: 065

REACTIONS (6)
  - Toxicity to various agents [Unknown]
  - Drug interaction [Unknown]
  - Depressed level of consciousness [Unknown]
  - Respiratory depression [Unknown]
  - Drug interaction [Unknown]
  - Off label use [Unknown]
